FAERS Safety Report 8195906-4 (Version None)
Quarter: 2012Q1

REPORT INFORMATION
  Report Type: 
  Country: None (occurrence: None)
  Receive Date: 20120308
  Receipt Date: 20120228
  Transmission Date: 20120608
  Serious: Yes (Other)
  Sender: FDA-Public Use
  Company Number: US-ASTRAZENECA-2012SE13784

PATIENT
  Age: 18012 Day
  Sex: Female
  Weight: 64.9 kg

DRUGS (6)
  1. MULTI-VITAMIN [Concomitant]
     Dosage: QD/QAM
     Route: 048
     Dates: start: 20000228
  2. PERCOCET [Concomitant]
     Indication: COMPLEX REGIONAL PAIN SYNDROME
     Dosage: 10/325 MG TID
     Route: 048
     Dates: start: 20090228
  3. SEROQUEL XR [Suspect]
     Indication: BIPOLAR DISORDER
     Route: 048
     Dates: start: 20100228, end: 20120224
  4. SEROQUEL XR [Suspect]
     Dosage: 200 MG IN AM AND 400 MG AT HS
     Route: 048
     Dates: start: 20120224
  5. MORPHINE CONTIN MS CONTIN [Concomitant]
     Indication: COMPLEX REGIONAL PAIN SYNDROME
     Route: 048
     Dates: start: 20090228
  6. VITAMIN B-12 [Concomitant]
     Indication: VITAMIN B12 DEFICIENCY

REACTIONS (1)
  - HEPATITIS C [None]
